FAERS Safety Report 12536493 (Version 1)
Quarter: 2016Q3

REPORT INFORMATION
  Report Type: Spontaneous
  Country: US (occurrence: US)
  Receive Date: 20160707
  Receipt Date: 20160707
  Transmission Date: 20161109
  Serious: No
  Sender: FDA-Public Use
  Company Number: US-PFIZER INC-2016307322

PATIENT
  Age: 76 Year
  Sex: Female

DRUGS (3)
  1. TRAVATAN [Suspect]
     Active Substance: TRAVOPROST
     Dosage: UNK
  2. LUMIGAN [Suspect]
     Active Substance: BIMATOPROST
     Dosage: UNK
  3. XALATAN [Suspect]
     Active Substance: LATANOPROST
     Dosage: UNK

REACTIONS (3)
  - Eye irritation [Unknown]
  - Epistaxis [Unknown]
  - Sinus disorder [Unknown]
